FAERS Safety Report 25095133 (Version 1)
Quarter: 2025Q1

REPORT INFORMATION
  Report Type: Spontaneous
  Country: JP (occurrence: JP)
  Receive Date: 20250319
  Receipt Date: 20250319
  Transmission Date: 20250408
  Serious: Yes (Other)
  Sender: ELI LILLY AND COMPANY
  Company Number: JP-MLMSERVICE-20250306-PI439536-00101-1

PATIENT
  Age: 41 Year
  Sex: Female

DRUGS (2)
  1. GEMCITABINE HYDROCHLORIDE [Suspect]
     Active Substance: GEMCITABINE HYDROCHLORIDE
     Indication: Bladder cancer
     Route: 041
  2. CISPLATIN [Suspect]
     Active Substance: CISPLATIN
     Indication: Bladder cancer
     Route: 065

REACTIONS (7)
  - Premature baby [Unknown]
  - Malignant neoplasm progression [Unknown]
  - Maternal exposure during pregnancy [Recovered/Resolved]
  - Constipation [Unknown]
  - Nausea [Unknown]
  - Alopecia [Unknown]
  - Anaemia [Unknown]
